FAERS Safety Report 6171912-6 (Version None)
Quarter: 2009Q2

REPORT INFORMATION
  Report Type: 
  Country: None (occurrence: None)
  Receive Date: 20090429
  Receipt Date: 20090422
  Transmission Date: 20091009
  Serious: Yes (Hospitalization, Other)
  Sender: FDA-Public Use
  Company Number: IN-MERCK-0904USA03895

PATIENT
  Age: 50 Year
  Sex: Male

DRUGS (2)
  1. JANUVIA [Suspect]
     Indication: DIABETES MELLITUS
     Route: 048
     Dates: start: 20090101
  2. GLYCOMET [Concomitant]
     Indication: DIABETES MELLITUS
     Route: 048
     Dates: end: 20090420

REACTIONS (3)
  - FOOD POISONING [None]
  - GASTROENTERITIS [None]
  - ILEUS [None]
